FAERS Safety Report 6596836-1 (Version None)
Quarter: 2010Q1

REPORT INFORMATION
  Report Type: 
  Country: None (occurrence: None)
  Receive Date: 20100212
  Receipt Date: 20100201
  Transmission Date: 20100710
  Serious: Yes (Death)
  Sender: FDA-Public Use
  Company Number: 2010000454

PATIENT
  Age: 39 Year
  Sex: Male

DRUGS (1)
  1. FENTORA [Suspect]
     Indication: CANCER PAIN
     Dosage: BU
     Route: 002

REACTIONS (1)
  - DEATH [None]
